FAERS Safety Report 7800308-3 (Version None)
Quarter: 2011Q4

REPORT INFORMATION
  Report Type: 
  Country: None (occurrence: None)
  Receive Date: 20111004
  Receipt Date: 20110913
  Transmission Date: 20120403
  Serious: Yes (Hospitalization, Other)
  Sender: FDA-Public Use
  Company Number: 7082768

PATIENT
  Age: 6 Year
  Sex: Female

DRUGS (1)
  1. LEVOTHYROXINE SODIUM [Suspect]
     Indication: ACCIDENTAL DRUG INTAKE BY CHILD

REACTIONS (3)
  - ACCIDENTAL DRUG INTAKE BY CHILD [None]
  - TOXICITY TO VARIOUS AGENTS [None]
  - TACHYCARDIA [None]
